FAERS Safety Report 9021965 (Version 1)
Quarter: 2013Q1

REPORT INFORMATION
  Report Type: Spontaneous
  Country: US (occurrence: US)
  Receive Date: 20130118
  Receipt Date: 20130118
  Transmission Date: 20140127
  Serious: Yes (Other)
  Sender: FDA-Public Use
  Company Number: US-ROXANE LABORATORIES, INC.-2013-RO-00080RO

PATIENT
  Age: 7 Month
  Sex: Male

DRUGS (1)
  1. PREDNISONE [Suspect]
     Indication: AUTOIMMUNE THROMBOCYTOPENIA

REACTIONS (3)
  - Autoimmune hepatitis [Recovered/Resolved]
  - Growth retardation [Not Recovered/Not Resolved]
  - Hypertension [Unknown]
